FAERS Safety Report 8575886-X (Version None)
Quarter: 2012Q3

REPORT INFORMATION
  Report Type: 
  Country: None (occurrence: None)
  Receive Date: 20120807
  Receipt Date: 20120727
  Transmission Date: 20120928
  Serious: Yes (Hospitalization)
  Sender: FDA-Public Use
  Company Number: US-BAYER-2012-076896

PATIENT
  Age: 24 Year
  Sex: Female

DRUGS (5)
  1. HYDROCHLOROTHIAZDE TAB [Concomitant]
     Dosage: 12.5 MG, QD
     Route: 048
     Dates: start: 20110118
  2. TOPAMAX [Concomitant]
     Dosage: 150 MG, HS
     Route: 048
     Dates: start: 20110118
  3. HYDROCODONE BITARTRATE + ACETAMINOPHEN [Concomitant]
     Dosage: 5 MG - 325 MG
     Route: 048
  4. DROSPIRENONE AND ETHINYL ESTRADIOL [Suspect]
  5. IBUPROFEN [Concomitant]
     Dosage: 800 MG, TID AS NEEDED
     Route: 048
     Dates: start: 20110110

REACTIONS (1)
  - DEEP VEIN THROMBOSIS [None]
